FAERS Safety Report 5868346-8 (Version None)
Quarter: 2008Q3

REPORT INFORMATION
  Report Type: 
  Country: None (occurrence: None)
  Receive Date: 20080903
  Receipt Date: 20080826
  Transmission Date: 20090109
  Serious: Yes (Other)
  Sender: FDA-Public Use
  Company Number: US-JNJFOC-20080805996

PATIENT
  Age: 28 Year
  Sex: Female

DRUGS (8)
  1. REMICADE [Suspect]
     Indication: CROHN'S DISEASE
     Route: 042
  2. AZATHIOPRINE [Concomitant]
     Indication: CROHN'S DISEASE
  3. FISH OIL [Concomitant]
  4. TYLENOL (CAPLET) [Concomitant]
     Indication: PAIN
  5. MULTI VITAMIN WITH IRON [Concomitant]
  6. ORTHO TRI-CYCLEN [Concomitant]
     Indication: CONTRACEPTION
  7. VITAMIN D [Concomitant]
  8. ACETAMINOPHEN AND HYDROCODONE BITARTRATE [Concomitant]

REACTIONS (1)
  - BREAST CANCER [None]
